FAERS Safety Report 14550542 (Version 2)
Quarter: 2018Q2

REPORT INFORMATION
  Report Type: Report from Study
  Country: US (occurrence: US)
  Receive Date: 20180219
  Receipt Date: 20180524
  Transmission Date: 20180711
  Serious: No
  Sender: FDA-Public Use
  Company Number: US-ACADIA PHARMACEUTICALS INC.-ACA-2017-006907

PATIENT
  Sex: Male

DRUGS (2)
  1. NUPLAZID [Suspect]
     Active Substance: PIMAVANSERIN TARTRATE
     Dosage: 34 MG, QD
     Route: 065
     Dates: start: 20180126, end: 20180320
  2. NUPLAZID [Suspect]
     Active Substance: PIMAVANSERIN TARTRATE
     Indication: PARKINSON^S DISEASE
     Dosage: 17 MG, QD
     Route: 048
     Dates: start: 201712, end: 2017

REACTIONS (7)
  - Hypertension [Not Recovered/Not Resolved]
  - Cold sweat [Not Recovered/Not Resolved]
  - Nightmare [Not Recovered/Not Resolved]
  - Hot flush [Not Recovered/Not Resolved]
  - Anxiety [Not Recovered/Not Resolved]
  - Oedema [Unknown]
  - Prescribed underdose [Unknown]
